FAERS Safety Report 5491613-7 (Version None)
Quarter: 2007Q4

REPORT INFORMATION
  Report Type: 
  Country: None (occurrence: None)
  Receive Date: 20071018
  Receipt Date: 20071018
  Transmission Date: 20080405
  Serious: Yes (Life-Threatening)
  Sender: FDA-Public Use
  Company Number: None

PATIENT
  Age: 44 Year
  Sex: Female
  Weight: 39.2 kg

DRUGS (8)
  1. DASATINIB [Suspect]
     Indication: BLAST CELL CRISIS
     Dosage: 70MG PO BID
     Route: 048
     Dates: start: 20070618, end: 20070625
  2. DAPSONE [Concomitant]
  3. INSULIN [Concomitant]
  4. TACROLIMUS [Concomitant]
  5. OXYCODONE HCL [Concomitant]
  6. METHYLPREDNISOLONE [Concomitant]
  7. METOPROLOL [Concomitant]
  8. VORICONAZOLE [Concomitant]

REACTIONS (3)
  - ATELECTASIS [None]
  - BLOOD PRESSURE SYSTOLIC INCREASED [None]
  - PLEURAL EFFUSION [None]
